FAERS Safety Report 5322482-3 (Version None)
Quarter: 2007Q2

REPORT INFORMATION
  Report Type: 
  Country: None (occurrence: None)
  Receive Date: 20070511
  Receipt Date: 20070502
  Transmission Date: 20071010
  Serious: Yes (Hospitalization)
  Sender: FDA-Public Use
  Company Number: US-ELI_LILLY_AND_COMPANY-US200705000450

PATIENT
  Sex: Female

DRUGS (1)
  1. FORTEO [Suspect]
     Indication: OSTEOPOROSIS
     Dates: start: 20051201

REACTIONS (7)
  - CARTILAGE INJURY [None]
  - HAEMORRHAGE [None]
  - HAND FRACTURE [None]
  - HIP ARTHROPLASTY [None]
  - KNEE OPERATION [None]
  - THROMBOSIS [None]
  - TRANSFUSION [None]
